FAERS Safety Report 6362128-9 (Version None)
Quarter: 2009Q3

REPORT INFORMATION
  Report Type: 
  Country: None (occurrence: None)
  Receive Date: 20090918
  Receipt Date: 20090911
  Transmission Date: 20100115
  Serious: Yes (Hospitalization, Other)
  Sender: FDA-Public Use
  Company Number: GB-ABBOTT-03P-167-0207631-00

PATIENT
  Sex: Female
  Weight: 63 kg

DRUGS (12)
  1. HUMIRA [Suspect]
     Indication: RHEUMATOID ARTHRITIS
     Route: 058
     Dates: start: 20020126
  2. HUMIRA [Suspect]
  3. CELECOXIB [Concomitant]
     Indication: DRUG USE FOR UNKNOWN INDICATION
  4. PANADEINE CO [Concomitant]
     Indication: DRUG USE FOR UNKNOWN INDICATION
  5. COD-LIVER OIL [Concomitant]
     Indication: DRUG USE FOR UNKNOWN INDICATION
  6. FERROUS SULFATE TAB [Concomitant]
     Indication: DRUG USE FOR UNKNOWN INDICATION
  7. FOLIC ACID [Concomitant]
     Indication: DRUG USE FOR UNKNOWN INDICATION
  8. HYPROMELLOSE [Concomitant]
     Indication: DRUG USE FOR UNKNOWN INDICATION
  9. LANSOPRAZOLE [Concomitant]
     Indication: DRUG USE FOR UNKNOWN INDICATION
  10. CETRIZINE [Concomitant]
     Indication: DRUG USE FOR UNKNOWN INDICATION
  11. TRAMADOL HCL [Concomitant]
     Indication: DRUG USE FOR UNKNOWN INDICATION
  12. CO-CODAMOL [Concomitant]
     Indication: DRUG USE FOR UNKNOWN INDICATION

REACTIONS (2)
  - LOCAL REACTION [None]
  - NEUTROPHIL COUNT DECREASED [None]
